FAERS Safety Report 19872748 (Version 1)
Quarter: 2021Q3

REPORT INFORMATION
  Report Type: Spontaneous
  Country: US (occurrence: US)
  Receive Date: 20210922
  Receipt Date: 20210922
  Transmission Date: 20211014
  Serious: No
  Sender: FDA-Public Use
  Company Number: US-TEVA-2021-US-1955775

PATIENT
  Age: 49 Year
  Sex: Female
  Weight: 108 kg

DRUGS (2)
  1. ALBUTEROL SULFATE. [Concomitant]
     Active Substance: ALBUTEROL SULFATE
     Route: 065
     Dates: end: 20131112
  2. TAMOXIFEN CITRATE. [Suspect]
     Active Substance: TAMOXIFEN CITRATE
     Indication: BREAST CANCER FEMALE
     Dosage: 20 MILLIGRAM DAILY;
     Route: 048
     Dates: start: 20130905, end: 20180921

REACTIONS (1)
  - Mood swings [Unknown]

NARRATIVE: CASE EVENT DATE: 2013
